FAERS Safety Report 19142469 (Version 2)
Quarter: 2021Q2

REPORT INFORMATION
  Report Type: Spontaneous
  Country: US (occurrence: US)
  Receive Date: 20210416
  Receipt Date: 20210420
  Transmission Date: 20210717
  Serious: Yes (Other)
  Sender: FDA-Public Use
  Company Number: US-ASTRAZENECA-2018SF65656

PATIENT
  Age: 26146 Day
  Sex: Female
  Weight: 53.1 kg

DRUGS (5)
  1. PRILOSEC OTC [Suspect]
     Active Substance: OMEPRAZOLE MAGNESIUM
     Route: 048
  2. NEXIUM [Suspect]
     Active Substance: ESOMEPRAZOLE MAGNESIUM
     Dosage: ENTERIC COATED CAPSULE
     Route: 048
     Dates: start: 20110222
  3. LOVASTATIN. [Concomitant]
     Active Substance: LOVASTATIN
  4. ALEVE [Concomitant]
     Active Substance: NAPROXEN SODIUM
  5. PRILOSEC [Suspect]
     Active Substance: OMEPRAZOLE MAGNESIUM
     Dosage: ENTERIC COATED CAPSULE
     Route: 048
     Dates: start: 20100302

REACTIONS (4)
  - Chronic kidney disease [Unknown]
  - Rebound acid hypersecretion [Unknown]
  - Renal injury [Unknown]
  - Acute kidney injury [Unknown]

NARRATIVE: CASE EVENT DATE: 20181210
